FAERS Safety Report 18545841 (Version 1)
Quarter: 2020Q4

REPORT INFORMATION
  Report Type: Spontaneous
  Country: DE (occurrence: DE)
  Receive Date: 20201125
  Receipt Date: 20201125
  Transmission Date: 20210114
  Serious: Yes (Life-Threatening, Hospitalization, Other)
  Sender: FDA-Public Use
  Company Number: DE-MYLANLABS-2020M1096389

PATIENT
  Age: 86 Year
  Sex: Female

DRUGS (12)
  1. METOPROLOL. [Suspect]
     Active Substance: METOPROLOL
     Indication: PRODUCT USED FOR UNKNOWN INDICATION
     Dosage: 95 MILLIGRAM (95 MG, 1-0-0.5-0, RETARD-TABLETS)
     Route: 048
  2. FORMOTEROL [Concomitant]
     Active Substance: FORMOTEROL
     Dosage: 12 MICROGRAM (12 ?G, 1-0-1-0, DOSAGE AEROSOL)
     Route: 055
  3. METAMIZOL                          /06276701/ [Concomitant]
     Active Substance: METAMIZOLE
     Dosage: 500 MILLIGRAM (500 MG, 4X, TABLETS)
     Route: 048
  4. CANDESARTAN. [Concomitant]
     Active Substance: CANDESARTAN
     Dosage: 4 MILLIGRAM (4 MG, 1-0-0-0, TABLETS)
     Route: 048
  5. COLECALCIFEROL [Concomitant]
     Active Substance: CHOLECALCIFEROL
     Dosage: 20000 INTERNATIONAL UNIT, QW (20.000 IU /WEEK, 1X, CAPSULES)
     Route: 048
  6. RIVAROXABAN [Concomitant]
     Active Substance: RIVAROXABAN
     Dosage: 20 MILLIGRAM (20 MG, 1-0-0-0, TABLETS)
     Route: 048
  7. AMLODIPINE [Concomitant]
     Active Substance: AMLODIPINE BESYLATE
     Dosage: 5 MILLIGRAM (5 MG, 1-0-1-0, TABLETS)
     Route: 048
  8. SALBUTAMOL [Concomitant]
     Active Substance: ALBUTEROL
     Dosage: 0.1 MILLIGRAM (0.1 MG, 2X,DOSAGE AEROSOL)
     Route: 055
  9. OXYCODONE [Concomitant]
     Active Substance: OXYCODONE
     Dosage: 20 MILLIGRAM (20 MG, 1-0-1-0, RETARD-TABLETS)
     Route: 048
  10. LEVOTHYROXINE SODIUM. [Concomitant]
     Active Substance: LEVOTHYROXINE SODIUM
     Dosage: 125 MICROGRAM (125 ?G, 1-0-0-0, TABLETS)
     Route: 048
  11. CELECOXIB. [Concomitant]
     Active Substance: CELECOXIB
     Dosage: 100 MILLIGRAM, PRN (100MG, IF NEEDED,CAPSULES)
     Route: 048
  12. TORASEMID [Concomitant]
     Active Substance: TORSEMIDE
     Dosage: 2.5 MILLIGRAM (2.5 MG, 1-0-0-0, TABLETS)
     Route: 048

REACTIONS (6)
  - Hyperhidrosis [Unknown]
  - Syncope [Unknown]
  - Palpitations [Unknown]
  - Tachycardia [Unknown]
  - Dizziness [Unknown]
  - Bradycardia [Unknown]
